FAERS Safety Report 20277920 (Version 1)
Quarter: 2022Q1

REPORT INFORMATION
  Report Type: Spontaneous
  Country: US (occurrence: US)
  Receive Date: 20220103
  Receipt Date: 20220103
  Transmission Date: 20220423
  Serious: Yes (Other)
  Sender: FDA-Public Use
  Company Number: US-SANOFI-00912688

PATIENT
  Sex: Male

DRUGS (3)
  1. DULCOLAX STOOL SOFTENER [Suspect]
     Active Substance: DOCUSATE SODIUM
  2. COLACE [Concomitant]
     Active Substance: DOCUSATE SODIUM
  3. LINZESS [Concomitant]
     Active Substance: LINACLOTIDE

REACTIONS (1)
  - Drug dependence [Unknown]
